FAERS Safety Report 16452025 (Version 1)
Quarter: 2019Q2

REPORT INFORMATION
  Report Type: Spontaneous
  Country: US (occurrence: US)
  Receive Date: 20190619
  Receipt Date: 20190619
  Transmission Date: 20190711
  Serious: No
  Sender: FDA-Public Use
  Company Number: US-ROCHE-2186902

PATIENT
  Sex: Female

DRUGS (10)
  1. ACTEMRA [Suspect]
     Active Substance: TOCILIZUMAB
     Indication: TAKAYASU^S ARTERITIS
     Dosage: 0.9ML SD PFS
     Route: 058
  2. LEXAPRO [Concomitant]
     Active Substance: ESCITALOPRAM OXALATE
     Route: 065
  3. NITROGLYCERIN. [Concomitant]
     Active Substance: NITROGLYCERIN
  4. ATORVASTATIN [Concomitant]
     Active Substance: ATORVASTATIN
     Route: 065
  5. ACTEMRA [Suspect]
     Active Substance: TOCILIZUMAB
     Indication: TAKAYASU^S ARTERITIS
     Route: 042
  6. FOLIC ACID. [Concomitant]
     Active Substance: FOLIC ACID
     Dosage: 800MCG
     Route: 065
  7. TOPIRAMATE. [Concomitant]
     Active Substance: TOPIRAMATE
     Route: 065
  8. BUPROPION HCL [Concomitant]
     Active Substance: BUPROPION HYDROCHLORIDE
     Route: 065
  9. OMEPRAZOLE. [Concomitant]
     Active Substance: OMEPRAZOLE
     Route: 065
  10. ASPIRIN [ACETYLSALICYLIC ACID] [Concomitant]
     Active Substance: ASPIRIN
     Route: 065

REACTIONS (4)
  - Injection site bruising [Unknown]
  - Platelet count decreased [Unknown]
  - Intentional product use issue [Unknown]
  - Off label use [Unknown]
